FAERS Safety Report 16939039 (Version 1)
Quarter: 2019Q4

REPORT INFORMATION
  Report Type: Report from Study
  Country: US (occurrence: US)
  Receive Date: 20191020
  Receipt Date: 20191020
  Transmission Date: 20200122
  Serious: Yes (Hospitalization, Other)
  Sender: FDA-Public Use
  Company Number: US-NOVOPROD-677458

PATIENT
  Age: 69 Year
  Sex: Female

DRUGS (3)
  1. LEVEMIR [Suspect]
     Active Substance: INSULIN DETEMIR
     Indication: TYPE 2 DIABETES MELLITUS
     Dosage: 80 IU, QD
     Route: 058
     Dates: end: 20190729
  2. NOVOLOG [Suspect]
     Active Substance: INSULIN ASPART
     Indication: TYPE 2 DIABETES MELLITUS
     Dosage: UNK
     Route: 058
  3. VICTOZA [Suspect]
     Active Substance: LIRAGLUTIDE
     Indication: TYPE 2 DIABETES MELLITUS
     Dosage: UNK
     Route: 058
     Dates: end: 20190703

REACTIONS (7)
  - Lipohypertrophy [Not Recovered/Not Resolved]
  - Cushingoid [Not Recovered/Not Resolved]
  - Pancreatitis [Recovered/Resolved]
  - Pancreatitis [Recovered/Resolved]
  - Uterine cancer [Recovered/Resolved]
  - Blood glucose increased [Recovered/Resolved]
  - Insulin resistance [Not Recovered/Not Resolved]

NARRATIVE: CASE EVENT DATE: 201702
